FAERS Safety Report 10744255 (Version 1)
Quarter: 2015Q1

REPORT INFORMATION
  Report Type: Spontaneous
  Country: US (occurrence: None)
  Receive Date: 20150126
  Receipt Date: 20150126
  Transmission Date: 20150721
  Serious: No
  Sender: FDA-Public Use
  Company Number: None

PATIENT
  Age: 90 Year
  Sex: Male
  Weight: 69.5 kg

DRUGS (1)
  1. PIPERACILLIN/TAZOBACTAM [Suspect]
     Active Substance: PIPERACILLIN SODIUM\TAZOBACTAM SODIUM
     Indication: CELLULITIS
     Route: 042
     Dates: start: 20150110, end: 20150110

REACTIONS (8)
  - Tachypnoea [None]
  - Chills [None]
  - Wheezing [None]
  - Tremor [None]
  - Blood pressure increased [None]
  - Oxygen saturation decreased [None]
  - Nervousness [None]
  - Tachycardia [None]

NARRATIVE: CASE EVENT DATE: 20150110
